FAERS Safety Report 8138282-5 (Version None)
Quarter: 2012Q1

REPORT INFORMATION
  Report Type: 
  Country: None (occurrence: None)
  Receive Date: 20120213
  Receipt Date: 20120206
  Transmission Date: 20120608
  Serious: Yes (Other)
  Sender: FDA-Public Use
  Company Number: B0780441A

PATIENT
  Age: 5 Year
  Sex: Male

DRUGS (4)
  1. ENOXAPARIN [Concomitant]
  2. FONDAPARINUX SODIUM [Suspect]
     Indication: PAIN
  3. CODEINE SULFATE [Concomitant]
  4. ACETAMINOPHEN [Concomitant]

REACTIONS (1)
  - HEPATITIS [None]
